FAERS Safety Report 8487556-7 (Version None)
Quarter: 2012Q3

REPORT INFORMATION
  Report Type: 
  Country: None (occurrence: None)
  Receive Date: 20120705
  Receipt Date: 20120627
  Transmission Date: 20120928
  Serious: Yes (Other)
  Sender: FDA-Public Use
  Company Number: US-PERRIGO-12US005578

PATIENT
  Sex: Female
  Weight: 146.3 kg

DRUGS (7)
  1. WELLBUTRIN [Concomitant]
     Indication: BIPOLAR DISORDER
     Dosage: 150 MG, UNK
     Route: 048
     Dates: start: 20110601
  2. TRILEPTAL [Concomitant]
     Indication: BIPOLAR DISORDER
     Dosage: 300 MG, UNK
     Route: 048
     Dates: start: 20110601
  3. KLONOPIN [Concomitant]
     Indication: BIPOLAR DISORDER
     Dosage: 1 MG, UNK
     Route: 048
     Dates: start: 20110601
  4. RESTORIL [Concomitant]
     Indication: BIPOLAR DISORDER
     Dosage: 15 MG, PRN
     Route: 048
     Dates: start: 20110601
  5. PSEUDEOPHEDRINE HCL [Suspect]
     Indication: SINUS CONGESTION
     Dosage: 120 MG, SINGLE
     Route: 048
     Dates: start: 20120618, end: 20120618
  6. RISPERDAL [Concomitant]
     Indication: BIPOLAR DISORDER
     Dosage: 2 MG, UNK
     Route: 048
     Dates: start: 20110601
  7. CELEXA [Concomitant]
     Indication: BIPOLAR DISORDER
     Dosage: 40 MG, UNK
     Route: 048
     Dates: start: 20110601

REACTIONS (2)
  - BLOOD PRESSURE INCREASED [None]
  - CONVULSION [None]
